FAERS Safety Report 10061421 (Version 3)
Quarter: 2014Q2

REPORT INFORMATION
  Report Type: Spontaneous
  Country: JP (occurrence: JP)
  Receive Date: 20140407
  Receipt Date: 20140422
  Transmission Date: 20141212
  Serious: Yes (Death)
  Sender: FDA-Public Use
  Company Number: JP-JNJFOC-20140318689

PATIENT
  Age: 51 Year
  Sex: Male
  Weight: 103 kg

DRUGS (32)
  1. XEPLION [Suspect]
     Indication: SCHIZOPHRENIA
     Route: 030
     Dates: start: 20140228, end: 20140228
  2. XEPLION [Suspect]
     Indication: SCHIZOPHRENIA
     Route: 030
     Dates: start: 20140124, end: 20140124
  3. XEPLION [Suspect]
     Indication: SCHIZOPHRENIA
     Route: 030
     Dates: start: 20140131, end: 20140131
  4. INVEGA [Suspect]
     Indication: SCHIZOPHRENIA
     Route: 048
     Dates: start: 20120420, end: 20120516
  5. INVEGA [Suspect]
     Indication: SCHIZOPHRENIA
     Route: 048
  6. INVEGA [Suspect]
     Indication: SCHIZOPHRENIA
     Route: 048
     Dates: start: 20120615
  7. INVEGA [Suspect]
     Indication: SCHIZOPHRENIA
     Route: 048
     Dates: start: 20120517, end: 20140308
  8. RISPERDAL [Suspect]
     Indication: SCHIZOPHRENIA
     Route: 048
     Dates: start: 20140128
  9. RISPERDAL [Suspect]
     Indication: SCHIZOPHRENIA
     Route: 048
     Dates: start: 20120517
  10. RISPERDAL [Suspect]
     Indication: SCHIZOPHRENIA
     Route: 048
     Dates: end: 20140130
  11. RISPERDAL [Suspect]
     Indication: SCHIZOPHRENIA
     Route: 048
     Dates: start: 20040705, end: 20120419
  12. RISPERDAL [Suspect]
     Indication: SCHIZOPHRENIA
     Route: 048
     Dates: start: 20120420, end: 20120516
  13. RISPERDAL [Suspect]
     Indication: SCHIZOPHRENIA
     Route: 048
     Dates: start: 20140131, end: 20140227
  14. RISPERIDONE [Suspect]
     Indication: SCHIZOPHRENIA
     Route: 065
     Dates: start: 20140228, end: 20140308
  15. LIMAS [Concomitant]
     Indication: SCHIZOPHRENIA
     Route: 048
     Dates: start: 1993, end: 20140131
  16. AKINETON [Concomitant]
     Indication: SCHIZOPHRENIA
     Route: 048
     Dates: start: 1985
  17. ZESULAN [Concomitant]
     Indication: SCHIZOPHRENIA
     Route: 048
     Dates: start: 20080303
  18. LORAZEPAM [Concomitant]
     Indication: SCHIZOPHRENIA
     Route: 048
     Dates: start: 20140228
  19. HALRACK [Concomitant]
     Indication: INSOMNIA
     Route: 048
  20. LUNESTA [Concomitant]
     Indication: INSOMNIA
     Route: 048
     Dates: start: 20131129
  21. SHINLUCK [Concomitant]
     Indication: CONSTIPATION
     Route: 048
  22. TSUMURA (NOS) [Concomitant]
     Route: 048
     Dates: start: 20121214
  23. SENNOSIDE [Concomitant]
     Indication: CONSTIPATION
     Route: 048
     Dates: start: 20130222
  24. MICARDIS [Concomitant]
     Indication: HYPERTENSION
     Route: 048
  25. ALOSITOL [Concomitant]
     Indication: HYPERTENSION
     Route: 048
  26. LIPIDIL [Concomitant]
     Indication: PRODUCT USED FOR UNKNOWN INDICATION
     Route: 048
  27. METGLUCO [Concomitant]
     Indication: DIABETES MELLITUS
     Route: 048
  28. DETRUSITOL (TOLTERODINE TARTRATE) [Concomitant]
     Route: 048
  29. WYPAX [Concomitant]
     Indication: SCHIZOPHRENIA
     Route: 048
     Dates: start: 2006, end: 20140227
  30. FLUMEZIN [Concomitant]
     Indication: PRODUCT USED FOR UNKNOWN INDICATION
     Route: 048
  31. CONTOMIN [Concomitant]
     Indication: PRODUCT USED FOR UNKNOWN INDICATION
     Route: 065
  32. ORAP [Concomitant]
     Indication: PRODUCT USED FOR UNKNOWN INDICATION
     Route: 048

REACTIONS (3)
  - Death [Fatal]
  - Wheezing [Unknown]
  - Thirst [Unknown]
